FAERS Safety Report 9513659 (Version 1)
Quarter: 2013Q1

REPORT INFORMATION
  Report Type: Spontaneous
  Country: US (occurrence: None)
  Receive Date: 20130305
  Receipt Date: 20130305
  Transmission Date: 20140127
  Serious: Yes (Other)
  Sender: FDA-Public Use
  Company Number: 163-21880-12102570

PATIENT
  Age: 74 Year
  Sex: Female

DRUGS (14)
  1. REVLIMID [Suspect]
     Indication: PLASMA CELL MYELOMA
     Route: 048
     Dates: start: 201105
  2. GABAPENTIN (GABAPENTIN) (UNKNOWN) (GABAPENTIN) [Concomitant]
  3. ASPIRIN (ACETYLSALICYLIC ACID) (UNKNOWN) (ACETYLSALICYLIC ACID) [Concomitant]
  4. COUMADIN (WARFARIN SODIUM) (UNKNOWN) [Concomitant]
  5. OXYCONTIN (OXYCODONE HYDROCHLORIDE) (UNKNOWN) [Concomitant]
  6. LISINOPRIL (LISINOPRIL) (UNKNOWN) [Concomitant]
  7. METFORMIN (METFORMIN) (UNKNOWN) [Concomitant]
  8. DEXAMETHASONE (DEXAMETHASONE) (UNKNOWN) [Concomitant]
  9. MULTIVITAMINS (MULTIVITAMINS) (UNKNOWN) [Concomitant]
  10. FOLIC ACID (FOLIC ACID) (UNKNOWN) [Concomitant]
  11. B COMPLEX (BECOSYM FORTE) (UNKNOWN) [Concomitant]
  12. CYMBALTA (DULOXETINE HYDROCHLORIDE) (UNKNOWN) [Concomitant]
  13. OXYCODONE (OXYCODONE) (UNKNOWN) (OXYCODONE) [Concomitant]
  14. CALCIUM (CALCIUM) (UNKNOWN) [Concomitant]

REACTIONS (3)
  - Pain [None]
  - Abdominal pain upper [None]
  - Diarrhoea [None]
